FAERS Safety Report 4274788-7 (Version None)
Quarter: 2004Q1

REPORT INFORMATION
  Report Type: 
  Country: None (occurrence: None)
  Receive Date: 20040115
  Receipt Date: 20040105
  Transmission Date: 20041129
  Serious: Yes (Death, Other)
  Sender: FDA-Public Use
  Company Number: JP-JNJFOC-20031201119

PATIENT
  Age: 52 Year
  Sex: Male
  Weight: 54.8 kg

DRUGS (19)
  1. REMICADE [Suspect]
     Indication: RHEUMATOID ARTHRITIS
     Dosage: SEE IMAGE
     Route: 041
     Dates: start: 20030919, end: 20030919
  2. REMICADE [Suspect]
     Indication: RHEUMATOID ARTHRITIS
     Dosage: SEE IMAGE
     Route: 041
     Dates: start: 20031018, end: 20031018
  3. AZULFIDINE [Suspect]
     Indication: DRUG USE FOR UNKNOWN INDICATION
  4. RHEUMATREX [Suspect]
     Indication: DRUG USE FOR UNKNOWN INDICATION
     Dosage: SEE IMAGE
     Route: 048
     Dates: start: 20000512, end: 20001104
  5. RHEUMATREX [Suspect]
     Indication: DRUG USE FOR UNKNOWN INDICATION
     Dosage: SEE IMAGE
     Route: 048
     Dates: start: 20001104, end: 20011012
  6. RHEUMATREX [Suspect]
     Indication: DRUG USE FOR UNKNOWN INDICATION
     Dosage: SEE IMAGE
     Route: 048
     Dates: start: 20011012, end: 20031119
  7. PREDNISOLONE [Concomitant]
  8. PENICILLAMINE [Concomitant]
  9. NABOAL SR (DICLOFENAC SODIUM) [Concomitant]
  10. FOLIAMIN (FOLIC ACID) [Concomitant]
  11. DAI MEDIN          (ALL OTHER THERAPEUTIC PRODUCTS) [Concomitant]
  12. CALFALEAD         (ALL OTHER THERAPEUTIC PRODUCTS) [Concomitant]
  13. SELBEX (TEPRENONE) [Concomitant]
  14. INSIDE PAP (ALL OTHER THERAPEUTIC PRODUCTS) [Concomitant]
  15. VOLTAREN [Concomitant]
  16. NIZATIDINE [Concomitant]
  17. PENFILL R (INSULIN HUMAN) [Concomitant]
  18. KAMAG (MAGNESIUM OXIDE) [Concomitant]
  19. GASMOTIN (MOSAPRIDE CITRATE) [Concomitant]

REACTIONS (4)
  - BLISTER [None]
  - HAEMOLYTIC ANAEMIA [None]
  - HYPONATRAEMIA [None]
  - RASH [None]
